FAERS Safety Report 10064909 (Version 3)
Quarter: 2015Q2

REPORT INFORMATION
  Report Type: Spontaneous
  Country: US (occurrence: US)
  Receive Date: 20140408
  Receipt Date: 20150414
  Transmission Date: 20150821
  Serious: Yes (Death, Life-Threatening, Other)
  Sender: FDA-Public Use
  Company Number: US-009507513-1404USA004091

PATIENT
  Sex: Male
  Weight: 88.44 kg

DRUGS (3)
  1. JANUVIA [Suspect]
     Active Substance: SITAGLIPTIN PHOSPHATE
     Indication: TYPE 2 DIABETES MELLITUS
     Dosage: 100 MG, QD
     Route: 048
     Dates: start: 20080506, end: 20091228
  2. JANUMET [Suspect]
     Active Substance: METFORMIN HYDROCHLORIDE\SITAGLIPTIN PHOSPHATE
     Indication: TYPE 2 DIABETES MELLITUS
     Dosage: 50/1000 MG, BID
     Route: 048
     Dates: start: 20100126, end: 20120123
  3. CATAPRES [Concomitant]
     Active Substance: CLONIDINE HYDROCHLORIDE
     Indication: HYPERTENSION
     Dosage: UNK
     Dates: start: 1990, end: 20130605

REACTIONS (9)
  - Metastases to liver [Unknown]
  - Lipids increased [Unknown]
  - Diverticulum intestinal [Unknown]
  - Renal atrophy [Unknown]
  - Hepatic cirrhosis [Unknown]
  - Spinal osteoarthritis [Unknown]
  - Intestinal dilatation [Unknown]
  - Pancreatic carcinoma metastatic [Fatal]
  - Spinal column stenosis [Unknown]

NARRATIVE: CASE EVENT DATE: 20130327
